FAERS Safety Report 7498514-3 (Version None)
Quarter: 2011Q2

REPORT INFORMATION
  Report Type: 
  Country: None (occurrence: None)
  Receive Date: 20110524
  Receipt Date: 20090612
  Transmission Date: 20111010
  Serious: Yes (Death, Other)
  Sender: FDA-Public Use
  Company Number: US-BAYER-200923245NA

PATIENT
  Age: 72 Year
  Sex: Male
  Weight: 46.259 kg

DRUGS (32)
  1. LASIX [Concomitant]
     Dosage: 80 MG, QD
     Route: 048
  2. ALDACTONE [Concomitant]
     Dosage: 25 MG, QD
     Route: 048
  3. MUCOMYST [Concomitant]
     Dosage: 600 MG, BID
     Dates: start: 20021125, end: 20021126
  4. RED BLOOD CELLS [Concomitant]
     Dosage: 6 UNITS PACKED RED BLOOD CELLS
     Route: 042
     Dates: start: 20021202, end: 20021202
  5. METHOTREXAT [METHOTREXATE] [Concomitant]
     Dosage: 5 MG WEEKLY
  6. PLASMA [Concomitant]
     Dosage: 2 UNITS
     Route: 042
     Dates: start: 20021202, end: 20021202
  7. CRYOPRECIPITATES [Concomitant]
     Dosage: 10 UNITS
     Route: 042
     Dates: start: 20021202, end: 20021202
  8. RED BLOOD CELLS [Concomitant]
     Indication: HAEMOGLOBIN DECREASED
     Dosage: 2 UNITS
     Route: 042
     Dates: start: 20021129, end: 20021129
  9. PROTAMINE SULFATE [Concomitant]
     Dosage: 60 MG
     Route: 041
     Dates: start: 20021202
  10. TRASYLOL [Suspect]
     Indication: MITRAL VALVE REPLACEMENT
     Dosage: 50 ML/HOUR
     Route: 042
     Dates: start: 20021202, end: 20021202
  11. TRASYLOL [Suspect]
     Indication: AORTIC VALVE REPLACEMENT
  12. ASPIRIN [Concomitant]
     Dosage: 325 MG, QD
  13. CEPHALEXIN [Concomitant]
     Dosage: 500 MG X 7 DAYS
     Route: 048
     Dates: start: 20021028
  14. POTASSIUM CHLORIDE [Concomitant]
     Dosage: 8 MEQ, UNK
     Route: 048
     Dates: start: 20020519
  15. BUMEX [Concomitant]
     Dosage: 2 MG AFTER EACH UNIT OF BLOOD
     Route: 042
  16. BUMEX [Concomitant]
     Dosage: 7.5 MG
     Route: 042
     Dates: start: 20021202
  17. HEPARIN [Concomitant]
     Dosage: 45,000 UNITS
     Route: 042
     Dates: start: 20021202
  18. VITAMIN E [Concomitant]
     Dosage: 1 QD, LONG TERM USE
     Route: 048
  19. PREDNISONE [Concomitant]
     Dosage: 10 MG, QD
  20. EPOGEN [Concomitant]
     Dosage: 10,000 UNITS QD
     Route: 058
     Dates: start: 20021129
  21. PLATELETS [Concomitant]
     Dosage: 2 UNITS
     Route: 042
     Dates: start: 20021202, end: 20021202
  22. MILRINONE [Concomitant]
     Dosage: UNK
     Route: 042
     Dates: start: 20021202
  23. NITROGLYCERIN [Concomitant]
     Dosage: 0.4 MG
     Route: 060
     Dates: start: 20020325
  24. PRINIVIL [Concomitant]
     Dosage: 10 MG, QD
     Route: 048
  25. VANCOMYCIN [Concomitant]
     Dosage: 1 MG PRE OP
     Route: 042
     Dates: start: 20021202
  26. TRASYLOL [Suspect]
     Indication: CORONARY ARTERY BYPASS
     Dosage: 1 MILLION UNITS LOADING DOSE (KIU)
     Route: 042
     Dates: start: 20021202, end: 20021202
  27. TRASYLOL [Suspect]
     Indication: TRICUSPID VALVE REPAIR
  28. TOPROL-XL [Concomitant]
     Dosage: 50 MG, QD
     Route: 048
  29. NEXIUM [Concomitant]
     Dosage: 40 MG
     Route: 048
  30. CEPHALEXIN [Concomitant]
     Dosage: 500 MG QD X 7 DAYS
     Route: 048
     Dates: start: 20020909
  31. RED BLOOD CELLS [Concomitant]
     Dosage: 2 UNITS
     Route: 042
     Dates: start: 20021130, end: 20021130
  32. VASOPRESSIN [LYPRESSIN] [Concomitant]
     Dosage: UNK
     Route: 042
     Dates: start: 20021202

REACTIONS (5)
  - RENAL FAILURE ACUTE [None]
  - RENAL FAILURE [None]
  - RENAL INJURY [None]
  - DEATH [None]
  - INJURY [None]
